FAERS Safety Report 7306118-8 (Version None)
Quarter: 2011Q1

REPORT INFORMATION
  Report Type: 
  Country: None (occurrence: None)
  Receive Date: 20110222
  Receipt Date: 20110215
  Transmission Date: 20110831
  Serious: Yes (Other)
  Sender: FDA-Public Use
  Company Number: CHPA2011DK02656

PATIENT
  Sex: Female

DRUGS (2)
  1. OTRIVIN [Suspect]
     Indication: NASAL MUCOSAL DISORDER
     Dosage: UNK, UNK
     Route: 045
  2. OTRIVIN [Suspect]
     Indication: NASAL CONGESTION

REACTIONS (2)
  - DRUG DEPENDENCE [None]
  - THERAPEUTIC RESPONSE DECREASED [None]
